FAERS Safety Report 7680495-0 (Version None)
Quarter: 2011Q3

REPORT INFORMATION
  Report Type: 
  Country: None (occurrence: None)
  Receive Date: 20110812
  Receipt Date: 20110808
  Transmission Date: 20111222
  Serious: Yes (Hospitalization)
  Sender: FDA-Public Use
  Company Number: US-SANOFI-AVENTIS-2011SA051219

PATIENT
  Age: 59 Year
  Sex: Male

DRUGS (15)
  1. MOMETASONE FUROATE [Concomitant]
  2. NICOTINE [Concomitant]
  3. GUAIFENESIN [Concomitant]
  4. PREDNISONE [Concomitant]
  5. MOXIFLOXACIN HYDROCHLORIDE [Concomitant]
  6. VARDENAFIL HYDROCHLORIDE (LEVITRA) [Concomitant]
  7. BRIMONIDINE TARTRATE [Concomitant]
  8. HYDROCHLOROTHIAZIDE [Concomitant]
  9. TRAVOPROST [Concomitant]
  10. BUPROPION HCL [Concomitant]
  11. TIOTROPIUM BROMIDE [Concomitant]
  12. PLACEBO [Suspect]
     Indication: THROMBOSIS PROPHYLAXIS
     Route: 065
     Dates: start: 20091119, end: 20091218
  13. ALBUTEROL SULFATE [Concomitant]
  14. SALMETEROL [Concomitant]
  15. ENOXAPARIN SODIUM [Suspect]
     Indication: THROMBOSIS PROPHYLAXIS
     Route: 058
     Dates: start: 20091119, end: 20091124

REACTIONS (2)
  - SYNCOPE [None]
  - PATELLA FRACTURE [None]
